FAERS Safety Report 5345388-2 (Version None)
Quarter: 2007Q2

REPORT INFORMATION
  Report Type: 
  Country: None (occurrence: None)
  Receive Date: 20070605
  Receipt Date: 20070525
  Transmission Date: 20071010
  Serious: Yes (Hospitalization)
  Sender: FDA-Public Use
  Company Number: PHHO2006DE10549

PATIENT
  Sex: Male
  Weight: 89.5 kg

DRUGS (3)
  1. CELLCEPT [Suspect]
     Indication: RENAL TRANSPLANT
     Dosage: 1000 MG/DAY
     Route: 048
  2. METHYLPREDNISOLONE [Suspect]
     Indication: RENAL TRANSPLANT
     Dosage: 10 MG/DAY
     Route: 048
  3. OPTORAL [Suspect]
     Indication: RENAL TRANSPLANT
     Dosage: 250 MG/DAY
     Route: 048

REACTIONS (4)
  - HEADACHE [None]
  - LUNG INFILTRATION [None]
  - PNEUMONIA [None]
  - PYREXIA [None]
